FAERS Safety Report 11374760 (Version 1)
Quarter: 2015Q3

REPORT INFORMATION
  Report Type: Spontaneous
  Country: US (occurrence: None)
  Receive Date: 20150812
  Receipt Date: 20150812
  Transmission Date: 20151125
  Serious: Yes (Hospitalization)
  Sender: FDA-Public Use
  Company Number: None

PATIENT
  Age: 51 Year
  Sex: Male
  Weight: 96.62 kg

DRUGS (25)
  1. FOLIC ACID. [Concomitant]
     Active Substance: FOLIC ACID
  2. LACTULOSE MAGNESIUM [Concomitant]
  3. CIPRO [Concomitant]
     Active Substance: CIPROFLOXACIN HYDROCHLORIDE
  4. RANITIDINE [Concomitant]
     Active Substance: RANITIDINE\RANITIDINE HYDROCHLORIDE
  5. SPIRONOLACTONE. [Concomitant]
     Active Substance: SPIRONOLACTONE
  6. THIAMINE. [Concomitant]
     Active Substance: THIAMINE
  7. HARVONI [Suspect]
     Active Substance: LEDIPASVIR\SOFOSBUVIR
     Indication: HEPATITIS C
     Dosage: 90/400 MG
     Route: 048
     Dates: start: 20150209, end: 20150504
  8. VITAMIN D [Concomitant]
     Active Substance: CHOLECALCIFEROL
  9. NICODERM CQ [Concomitant]
     Active Substance: NICOTINE
  10. BUMETANIDE. [Concomitant]
     Active Substance: BUMETANIDE
  11. SIMETHICONE (DIMETHICONE) [Concomitant]
     Active Substance: DIMETHICONE
  12. FLAGYL [Concomitant]
     Active Substance: METRONIDAZOLE\METRONIDAZOLE HYDROCHLORIDE
  13. CEFPODOXIME [Concomitant]
     Active Substance: CEFPODOXIME
  14. ENSUREM POLYWRHYLENE GLYCOL [Concomitant]
  15. ZOFRAN [Concomitant]
     Active Substance: ONDANSETRON HYDROCHLORIDE
  16. RIFAXIMIN [Concomitant]
     Active Substance: RIFAXIMIN
  17. CALCIUM [Concomitant]
     Active Substance: CALCIUM
  18. LINEZOLID. [Concomitant]
     Active Substance: LINEZOLID
  19. ALBUMIN [Concomitant]
     Active Substance: ALBUMIN (HUMAN)
  20. MIRALAX [Concomitant]
     Active Substance: POLYETHYLENE GLYCOL 3350
  21. FOSFOMYCIN [Concomitant]
     Active Substance: FOSFOMYCIN
  22. METOCLOPRAMIDE. [Concomitant]
     Active Substance: METOCLOPRAMIDE
  23. CIALIS [Concomitant]
     Active Substance: TADALAFIL
  24. IV LASIX [Concomitant]
  25. BUMEX [Concomitant]
     Active Substance: BUMETANIDE

REACTIONS (3)
  - Muscle spasms [None]
  - Dizziness [None]
  - Acute kidney injury [None]

NARRATIVE: CASE EVENT DATE: 20150328
